FAERS Safety Report 11426808 (Version 1)
Quarter: 2015Q3

REPORT INFORMATION
  Report Type: Spontaneous
  Country: US (occurrence: US)
  Receive Date: 20150821
  Receipt Date: 20150821
  Transmission Date: 20151125
  Serious: No
  Sender: FDA-Public Use
  Company Number: US-ELI_LILLY_AND_COMPANY-US201012004035

PATIENT
  Age: 48 Year
  Sex: Male

DRUGS (3)
  1. HUMULIN R [Suspect]
     Active Substance: INSULIN HUMAN
     Indication: TYPE 2 DIABETES MELLITUS
     Dosage: 40 U, 3/D
  2. HUMULIN R [Suspect]
     Active Substance: INSULIN HUMAN
     Dosage: 42 U, TID
  3. HUMULIN R [Suspect]
     Active Substance: INSULIN HUMAN
     Dosage: 40 U, 3/D

REACTIONS (5)
  - Blood glucose decreased [Unknown]
  - Therapeutic response decreased [Unknown]
  - Incorrect product storage [Recovered/Resolved]
  - Blood glucose increased [Not Recovered/Not Resolved]
  - Lethargy [Unknown]

NARRATIVE: CASE EVENT DATE: 201307
